FAERS Safety Report 8773987 (Version 2)
Quarter: 2013Q4

REPORT INFORMATION
  Report Type: Spontaneous
  Country: US (occurrence: US)
  Receive Date: 20120908
  Receipt Date: 20131003
  Transmission Date: 20140711
  Serious: Yes (Hospitalization, Disabling, Other)
  Sender: FDA-Public Use
  Company Number: US-009507513-1208USA011472

PATIENT
  Sex: Female

DRUGS (5)
  1. FOSAMAX [Suspect]
     Dosage: 70 MG, UNK
     Dates: start: 1998
  2. BONIVA [Suspect]
     Dosage: UNK
     Dates: start: 2002, end: 2009
  3. PRILOSEC [Concomitant]
  4. OMEPRAZOLE [Concomitant]
  5. ALENDRONATE SODIUM [Suspect]
     Dosage: UNK
     Dates: start: 2009

REACTIONS (20)
  - Femur fracture [Unknown]
  - Intramedullary rod insertion [Unknown]
  - Femur fracture [Unknown]
  - Intramedullary rod insertion [Unknown]
  - Fracture [Unknown]
  - Rotator cuff repair [Unknown]
  - Arthritis [Unknown]
  - Low turnover osteopathy [Unknown]
  - Anxiety [Not Recovered/Not Resolved]
  - Depression [Not Recovered/Not Resolved]
  - Calcium deficiency [Unknown]
  - Colitis ulcerative [Unknown]
  - Asthma [Unknown]
  - Hypertension [Unknown]
  - Hypercholesterolaemia [Unknown]
  - Cataract operation [Unknown]
  - Foot operation [Unknown]
  - Carpal tunnel decompression [Unknown]
  - Impaired healing [Unknown]
  - Stress fracture [Unknown]
